FAERS Safety Report 25289321 (Version 3)
Quarter: 2025Q3

REPORT INFORMATION
  Report Type: Spontaneous
  Country: US (occurrence: US)
  Receive Date: 20250509
  Receipt Date: 20250711
  Transmission Date: 20251021
  Serious: Yes (Death, Hospitalization)
  Sender: JOHNSON AND JOHNSON
  Company Number: US-JNJFOC-20250441774

PATIENT
  Age: 57 Year
  Sex: Male
  Weight: 74 kg

DRUGS (12)
  1. CARVYKTI [Suspect]
     Active Substance: CILTACABTAGENE AUTOLEUCEL
     Indication: Plasma cell myeloma
     Route: 042
     Dates: start: 20250324, end: 20250324
  2. ZOVIRAX [Concomitant]
     Active Substance: ACYCLOVIR
     Indication: Product used for unknown indication
     Route: 048
  3. NORVASC V [Concomitant]
     Indication: Product used for unknown indication
     Route: 048
  4. ECOTRIN [Concomitant]
     Active Substance: ASPIRIN
     Indication: Product used for unknown indication
     Route: 048
  5. LIPITOR [Concomitant]
     Active Substance: ATORVASTATIN CALCIUM
     Indication: Product used for unknown indication
     Route: 048
  6. BARACLUDE [Concomitant]
     Active Substance: ENTECAVIR
     Indication: Product used for unknown indication
     Route: 048
  7. NEURONTIN [Concomitant]
     Active Substance: GABAPENTIN
     Indication: Product used for unknown indication
     Route: 048
  8. JANUVIA [Concomitant]
     Active Substance: SITAGLIPTIN PHOSPHATE
     Indication: Product used for unknown indication
  9. JARDIANCE [Concomitant]
     Active Substance: EMPAGLIFLOZIN
     Indication: Product used for unknown indication
     Route: 048
  10. COZAAR [Concomitant]
     Active Substance: LOSARTAN POTASSIUM
     Indication: Product used for unknown indication
     Route: 048
  11. GLUCOPHAGE XR [Concomitant]
     Active Substance: METFORMIN HYDROCHLORIDE
     Indication: Product used for unknown indication
  12. LOPRESSOR [Concomitant]
     Active Substance: METOPROLOL TARTRATE
     Indication: Product used for unknown indication
     Route: 048

REACTIONS (11)
  - Hyperleukocytosis [Fatal]
  - Oedematous pancreatitis [Unknown]
  - Acute kidney injury [Unknown]
  - Human herpesvirus 6 infection [Unknown]
  - Proctitis [Unknown]
  - Haemophagocytic lymphohistiocytosis [Unknown]
  - Colitis [Unknown]
  - Immune effector cell-associated neurotoxicity syndrome [Unknown]
  - Pneumonia [Unknown]
  - Seizure [Unknown]
  - Salmonella test positive [Unknown]

NARRATIVE: CASE EVENT DATE: 20250406
